FAERS Safety Report 6750414-X (Version None)
Quarter: 2010Q2

REPORT INFORMATION
  Report Type: 
  Country: None (occurrence: None)
  Receive Date: 20100601
  Receipt Date: 20100519
  Transmission Date: 20101027
  Serious: Yes (Life-Threatening, Hospitalization)
  Sender: FDA-Public Use
  Company Number: CA-ELI_LILLY_AND_COMPANY-CA201005005292

PATIENT
  Age: 18 Year
  Sex: Male
  Weight: 72.562 kg

DRUGS (5)
  1. ZYPREXA [Suspect]
     Indication: PSYCHOTIC DISORDER
     Dosage: 9 MG, DAILY (1/D)
     Route: 048
  2. DEXADRIN [Concomitant]
     Dosage: 10 MG, DAILY (1/D)
     Route: 048
     Dates: start: 20021201, end: 20030904
  3. SEROQUEL [Concomitant]
     Indication: PSYCHOTIC DISORDER
     Dosage: 2 MG, DAILY (1/D)
     Route: 048
  4. RITALIN [Concomitant]
  5. RISPERDAL [Concomitant]

REACTIONS (7)
  - DECREASED APPETITE [None]
  - DIZZINESS [None]
  - INSOMNIA [None]
  - MOVEMENT DISORDER [None]
  - POOR PERIPHERAL CIRCULATION [None]
  - SYNCOPE [None]
  - WEIGHT DECREASED [None]
